FAERS Safety Report 8202014-2 (Version None)
Quarter: 2012Q1

REPORT INFORMATION
  Report Type: 
  Country: None (occurrence: None)
  Receive Date: 20120312
  Receipt Date: 20120305
  Transmission Date: 20120608
  Serious: Yes (Hospitalization, Other)
  Sender: FDA-Public Use
  Company Number: US-MERCK-1102USA01698

PATIENT
  Age: 64 Year
  Sex: Female

DRUGS (5)
  1. FOSAMAX [Suspect]
     Indication: OSTEOPOROSIS
     Route: 048
     Dates: start: 20010101, end: 20090101
  2. VITAMINS (UNSPECIFIED) [Concomitant]
     Route: 065
  3. FOSAMAX [Suspect]
     Indication: OSTEOPOROSIS PROPHYLAXIS
     Route: 048
     Dates: start: 20010101, end: 20090101
  4. FLAXSEED [Concomitant]
     Route: 065
  5. ASCORBIC ACID [Concomitant]
     Route: 065

REACTIONS (29)
  - PAIN IN EXTREMITY [None]
  - SKIN LESION [None]
  - ENTEROCELE [None]
  - CATARACT NUCLEAR [None]
  - FALL [None]
  - HAEMORRHAGIC ANAEMIA [None]
  - GAIT DISTURBANCE [None]
  - OESOPHAGITIS [None]
  - LEUKOPENIA [None]
  - PYELOCALIECTASIS [None]
  - FEMUR FRACTURE [None]
  - BLADDER PROLAPSE [None]
  - CERVIX INFLAMMATION [None]
  - CHOLELITHIASIS [None]
  - GASTROOESOPHAGEAL REFLUX DISEASE [None]
  - LOWER LIMB FRACTURE [None]
  - HYDRONEPHROSIS [None]
  - ARTHRALGIA [None]
  - HAEMATURIA [None]
  - STRESS URINARY INCONTINENCE [None]
  - ARTHROPATHY [None]
  - CYSTOCELE [None]
  - WRIST FRACTURE [None]
  - UTERINE POLYP [None]
  - CALCULUS URETERIC [None]
  - CATARACT CORTICAL [None]
  - TOOTH DISORDER [None]
  - URINARY RETENTION [None]
  - ARTHRITIS [None]
